FAERS Safety Report 6614213-1 (Version None)
Quarter: 2010Q1

REPORT INFORMATION
  Report Type: 
  Country: None (occurrence: None)
  Receive Date: 20100304
  Receipt Date: 20100223
  Transmission Date: 20100710
  Serious: Yes (Hospitalization, Other)
  Sender: FDA-Public Use
  Company Number: JP-PFIZER INC-2010010283

PATIENT
  Age: 80 Year
  Sex: Male
  Weight: 57.5 kg

DRUGS (3)
  1. SUNITINIB MALATE [Suspect]
     Indication: RENAL CELL CARCINOMA
     Dosage: 37.5 MG, 1X/DAY
     Route: 048
     Dates: start: 20091120
  2. OLMETEC [Concomitant]
     Dosage: UNK
     Route: 048
     Dates: start: 20091203
  3. PROCYLIN [Concomitant]
     Dosage: UNK
     Route: 048
     Dates: start: 20091104

REACTIONS (5)
  - DISSEMINATED INTRAVASCULAR COAGULATION [None]
  - HYPERTENSION [None]
  - HYPOTHYROIDISM [None]
  - PLATELET COUNT DECREASED [None]
  - WHITE BLOOD CELL COUNT DECREASED [None]
